FAERS Safety Report 5497447-1 (Version None)
Quarter: 2007Q4

REPORT INFORMATION
  Report Type: 
  Country: None (occurrence: None)
  Receive Date: 20071025
  Receipt Date: 20070126
  Transmission Date: 20080405
  Serious: No
  Sender: FDA-Public Use
  Company Number: A0627685A

PATIENT
  Age: 62 Year
  Sex: Male
  Weight: 120 kg

DRUGS (9)
  1. ADVAIR DISKUS 100/50 [Suspect]
     Indication: ASTHMA
     Dosage: 1PUFF PER DAY
     Route: 055
     Dates: start: 20051201, end: 20051204
  2. ZOCOR [Concomitant]
     Dosage: 20MG PER DAY
     Route: 048
  3. HYDROCHLOROTHIAZIDE [Concomitant]
     Dosage: 50MG PER DAY
     Route: 048
  4. VERAPAMIL [Concomitant]
     Dosage: 240MG PER DAY
     Route: 048
  5. POTASSIUM CL [Concomitant]
     Route: 048
  6. ALLOPURINOL [Concomitant]
     Dosage: 100MG PER DAY
     Route: 048
  7. ALBUTEROL [Concomitant]
     Route: 055
  8. DARVOCET [Concomitant]
     Route: 048
  9. IBUPROFEN [Concomitant]
     Route: 048

REACTIONS (1)
  - PHARYNGEAL HYPOAESTHESIA [None]
